FAERS Safety Report 15918842 (Version 3)
Quarter: 2019Q2

REPORT INFORMATION
  Report Type: Spontaneous
  Country: FR (occurrence: FR)
  Receive Date: 20190205
  Receipt Date: 20190515
  Transmission Date: 20190711
  Serious: Yes (Hospitalization)
  Sender: FDA-Public Use
  Company Number: FR-MYLANLABS-2019M1009295

PATIENT
  Age: 75 Year
  Sex: Male
  Weight: 69.9 kg

DRUGS (30)
  1. CARTEOLOL [Concomitant]
     Active Substance: CARTEOLOL
     Indication: HYPERTONIA
     Dosage: 1 GTT DROPS, QD
     Route: 065
     Dates: start: 20160927
  2. TRAMADOL. [Concomitant]
     Active Substance: TRAMADOL
     Dosage: 50 MILLIGRAM, QD
     Route: 048
     Dates: start: 20161005
  3. ATORVASTATIN [Concomitant]
     Active Substance: ATORVASTATIN
     Indication: HYPERCHOLESTEROLAEMIA
     Dosage: 10 MILLIGRAM, QD
     Route: 048
  4. CLOPIDOGREL [Concomitant]
     Active Substance: CLOPIDOGREL BISULFATE
     Indication: CARDIOVASCULAR EVENT PROPHYLAXIS
     Dosage: 75 MILLIGRAM, QD
     Route: 048
     Dates: start: 20161020, end: 20161220
  5. LANSOPRAZOLE. [Concomitant]
     Active Substance: LANSOPRAZOLE
     Indication: GASTROOESOPHAGEAL REFLUX DISEASE
     Dosage: 15 MILLIGRAM, QD
     Route: 048
  6. LOPERAMIDE [Concomitant]
     Active Substance: LOPERAMIDE
     Indication: GASTROINTESTINAL HYPERMOTILITY
     Dosage: 15 MILLIGRAM, QD
     Route: 048
  7. ZOLEDRONIC ACID [Concomitant]
     Active Substance: ZOLEDRONIC ACID
     Indication: PROPHYLAXIS
     Dosage: 4 MILLIGRAM, MONTHLY
     Route: 041
     Dates: start: 20160928
  8. CLOPIDOGREL [Concomitant]
     Active Substance: CLOPIDOGREL BISULFATE
     Dosage: 75 MILLIGRAM, QD
     Route: 048
     Dates: start: 201509
  9. TRAMADOL. [Concomitant]
     Active Substance: TRAMADOL
     Dosage: 50 MILLIGRAM, QD
     Route: 048
     Dates: start: 20161005
  10. LAMALINE                           /00764901/ [Concomitant]
     Active Substance: ACETAMINOPHEN\BELLADONNA LEAF\CAFFEINE\OPIUM
     Indication: ARTHRALGIA
     Dosage: UNK, QD
     Route: 048
     Dates: start: 20160906
  11. REVLIMID [Suspect]
     Active Substance: LENALIDOMIDE
     Indication: PLASMA CELL MYELOMA
     Dosage: 10 MILLIGRAM
     Route: 048
     Dates: start: 20161025
  12. BICARBONATE [Concomitant]
     Active Substance: SODIUM BICARBONATE
     Indication: MUCOSAL INFLAMMATION
     Dosage: 750 MILLILITER, QD
     Route: 048
     Dates: start: 20161013
  13. FENOFIBRATE. [Concomitant]
     Active Substance: FENOFIBRATE
     Indication: TYPE 2 DIABETES MELLITUS
     Dosage: 145 MILLIGRAM, QD
     Route: 048
  14. EPOETIN ALFA [Concomitant]
     Active Substance: ERYTHROPOIETIN
     Indication: ANAEMIA
     Dosage: 30000 INTERNATIONAL UNIT, QW
     Route: 058
     Dates: start: 20161011, end: 20161121
  15. REVLIMID [Suspect]
     Active Substance: LENALIDOMIDE
     Dosage: 315 MILLIGRAM, QD
     Route: 048
     Dates: start: 20160927
  16. DARATUMUMAB [Concomitant]
     Active Substance: DARATUMUMAB
     Indication: PLASMA CELL MYELOMA
     Dosage: 1168 MILLIGRAM, QW
     Route: 041
     Dates: start: 20160927
  17. VENLAFAXINE [Concomitant]
     Active Substance: VENLAFAXINE HYDROCHLORIDE
     Indication: DEPRESSION
     Dosage: UNK UNK, QD
     Route: 048
     Dates: start: 20161020
  18. TRAMADOL. [Concomitant]
     Active Substance: TRAMADOL
     Indication: ARTHRALGIA
     Dosage: 50 MILLIGRAM, QD
     Route: 048
     Dates: start: 20161004, end: 20170104
  19. SITAGLIPTIN PHOSPHATE MONOHYDRATE [Concomitant]
     Active Substance: SITAGLIPTIN PHOSPHATE
     Indication: TYPE 2 DIABETES MELLITUS
     Dosage: 100 MILLIGRAM, QD
     Route: 048
     Dates: start: 2013
  20. DEXAMETHASONE. [Suspect]
     Active Substance: DEXAMETHASONE
     Indication: PLASMA CELL MYELOMA
     Dosage: 20 MILLIGRAM, QW
     Route: 041
     Dates: start: 20160927
  21. ZOPICLONE [Concomitant]
     Active Substance: ZOPICLONE
     Indication: INSOMNIA
     Dosage: 3.75MG
     Route: 048
     Dates: start: 20161004, end: 20161128
  22. FENOFIBRATE. [Concomitant]
     Active Substance: FENOFIBRATE
     Indication: HYPERGLYCAEMIA
     Dosage: 145 MILLIGRAM, QD
     Route: 048
     Dates: start: 20161010
  23. MAGNESIUM [Concomitant]
     Active Substance: MAGNESIUM
     Indication: HYPOMAGNESAEMIA
     Dosage: 96 MILLIGRAM, QD
     Route: 048
     Dates: start: 20161008
  24. MAGNESIUM [Concomitant]
     Active Substance: MAGNESIUM
     Dosage: 244 MILLIGRAM, QD
     Route: 048
     Dates: start: 20161025
  25. MAGNESIUM [Concomitant]
     Active Substance: MAGNESIUM
     Dosage: 300 MILLIGRAM, QD
     Route: 048
     Dates: start: 20161212
  26. RAMIPRIL. [Concomitant]
     Active Substance: RAMIPRIL
     Indication: RENAL FAILURE
     Dosage: 2.5 MILLIGRAM, QD
     Route: 048
     Dates: start: 201309
  27. ALPRAZOLAM. [Concomitant]
     Active Substance: ALPRAZOLAM
     Indication: DEPRESSION
     Dosage: UNK, QD
     Route: 048
     Dates: start: 20161025
  28. VALACICLOVIR [Concomitant]
     Active Substance: VALACYCLOVIR HYDROCHLORIDE
     Indication: INFECTION PROPHYLAXIS
     Dosage: 500MG
     Route: 048
     Dates: start: 20161005
  29. FERRIC OXIDE, SACCHARATED [Concomitant]
     Indication: BLOOD IRON DECREASED
     Dosage: 40 MILLIGRAM, MONTHLY
     Route: 041
     Dates: start: 20161004
  30. AMPHOTERICINE B [Concomitant]
     Active Substance: AMPHOTERICIN B
     Indication: MUCOSAL INFLAMMATION
     Dosage: 30 MILLILITER, QD
     Route: 048
     Dates: start: 20161013, end: 20161027

REACTIONS (9)
  - Nervousness [Not Recovered/Not Resolved]
  - Hyperglycaemia [Recovered/Resolved]
  - Pneumonia [Not Recovered/Not Resolved]
  - Lung infection [Recovered/Resolved]
  - Stomatitis [Recovered/Resolved]
  - Diabetes mellitus inadequate control [Recovered/Resolved]
  - Bronchitis [Recovered/Resolved]
  - Asthenia [Recovered/Resolved]
  - Insomnia [Recovered/Resolved]

NARRATIVE: CASE EVENT DATE: 20161004
